FAERS Safety Report 7412318-9 (Version None)
Quarter: 2011Q2

REPORT INFORMATION
  Report Type: 
  Country: None (occurrence: None)
  Receive Date: 20110413
  Receipt Date: 20110404
  Transmission Date: 20111010
  Serious: Yes (Other)
  Sender: FDA-Public Use
  Company Number: US-JNJFOC-20110403509

PATIENT
  Age: 45 Year
  Sex: Male
  Weight: 90.72 kg

DRUGS (2)
  1. IMODIUM MULTI-SYMPTOM RELIEF [Suspect]
     Indication: DIARRHOEA
     Dosage: RECOMMENDED DOSAGE
     Route: 048
  2. IMODIUM MULTI-SYMPTOM RELIEF [Suspect]
     Route: 048

REACTIONS (2)
  - HAEMATOCHEZIA [None]
  - DRUG INEFFECTIVE [None]
